FAERS Safety Report 8974951 (Version 1)
Quarter: 2012Q4

REPORT INFORMATION
  Report Type: 
  Country: SE (occurrence: SE)
  Receive Date: 20121219
  Receipt Date: 20121219
  Transmission Date: 20130627
  Serious: Yes (Other)
  Sender: FDA-Public Use
  Company Number: SE-PFIZER INC-2012319896

PATIENT
  Age: 33 Year
  Sex: Female

DRUGS (2)
  1. LYRICA [Suspect]
     Indication: ANXIETY
     Dosage: 150 mg, 2x/day
  2. LYRICA [Suspect]
     Dosage: 1500 mg, UNK

REACTIONS (2)
  - Drug abuse [Recovered/Resolved]
  - Intentional overdose [Recovered/Resolved]
